FAERS Safety Report 17914548 (Version 1)
Quarter: 2020Q2

REPORT INFORMATION
  Report Type: Spontaneous
  Country: US (occurrence: US)
  Receive Date: 20200618
  Receipt Date: 20200618
  Transmission Date: 20200714
  Serious: Yes (Other)
  Sender: FDA-Public Use
  Company Number: US-PFIZER INC-2020235198

PATIENT
  Age: 48 Year
  Sex: Female

DRUGS (1)
  1. IBRANCE [Suspect]
     Active Substance: PALBOCICLIB
     Dosage: 75 MG, CYCLIC
     Dates: start: 20191220

REACTIONS (7)
  - Syncope [Unknown]
  - Blood glucose decreased [Unknown]
  - Seizure [Unknown]
  - Dysstasia [Unknown]
  - Product dose omission [Unknown]
  - Dyschezia [Unknown]
  - Eating disorder [Unknown]
